FAERS Safety Report 5100307-9 (Version None)
Quarter: 2006Q3

REPORT INFORMATION
  Report Type: 
  Country: None (occurrence: None)
  Receive Date: 20060731
  Receipt Date: 20060521
  Transmission Date: 20061208
  Serious: No
  Sender: FDA-Public Use
  Company Number: 2006PV014293

PATIENT
  Age: 55 Year
  Sex: Female

DRUGS (1)
  1. BYETTA [Suspect]
     Indication: DIABETES MELLITUS NON-INSULIN-DEPENDENT
     Dosage: 5 MCG;BID;SC
     Route: 058
     Dates: start: 20060519

REACTIONS (6)
  - ERYTHEMA [None]
  - FEELING JITTERY [None]
  - GALLBLADDER DISORDER [None]
  - HEPATOMEGALY [None]
  - HYPERHIDROSIS [None]
  - OEDEMA PERIPHERAL [None]
